FAERS Safety Report 9210032 (Version 2)
Quarter: 2013Q3

REPORT INFORMATION
  Report Type: Spontaneous
  Country: US (occurrence: US)
  Receive Date: 20130404
  Receipt Date: 20130711
  Transmission Date: 20140515
  Serious: No
  Sender: FDA-Public Use
  Company Number: US-ASTELLAS-2013US002639

PATIENT
  Sex: Male
  Weight: 127 kg

DRUGS (7)
  1. MYRBETRIQ [Suspect]
     Indication: NOCTURIA
     Dosage: 50 MG, BID
     Route: 048
     Dates: start: 20130224
  2. MYRBETRIQ [Suspect]
     Indication: POLLAKIURIA
  3. MYRBETRIQ [Suspect]
     Indication: URGE INCONTINENCE
  4. BOTOX [Concomitant]
     Indication: BLADDER DISORDER
     Dosage: OCCASIONALLY
     Route: 065
  5. LISINOPRIL [Concomitant]
     Indication: HYPERTENSION
     Dosage: 20 MG, UID/QD
     Route: 048
  6. XANAX [Concomitant]
     Indication: ANXIETY
     Dosage: 1 MG, ONCE OR TWICE DAILY
     Route: 048
  7. OMEPRAZOLE [Concomitant]
     Indication: GASTROOESOPHAGEAL REFLUX DISEASE
     Dosage: 40 MG, UID/QD
     Route: 048

REACTIONS (2)
  - Drug ineffective for unapproved indication [Unknown]
  - Prescribed overdose [Unknown]
